FAERS Safety Report 10449048 (Version 4)
Quarter: 2024Q2

REPORT INFORMATION
  Report Type: Spontaneous
  Country: FR (occurrence: FR)
  Receive Date: 20140912
  Receipt Date: 20240408
  Transmission Date: 20240715
  Serious: Yes (Death, Other)
  Sender: FDA-Public Use
  Company Number: FR-AUROBINDO-AUR-APL-2014-09752

PATIENT
  Age: 51 Year
  Sex: Male

DRUGS (10)
  1. TRAMADOL [Suspect]
     Active Substance: TRAMADOL\TRAMADOL HYDROCHLORIDE
     Indication: Suicide attempt
     Dosage: UNK
     Route: 065
  2. CODEINE [Suspect]
     Active Substance: CODEINE
     Indication: Suicide attempt
     Dosage: UNK
     Route: 065
  3. LYRICA [Suspect]
     Active Substance: PREGABALIN
     Indication: Epilepsy
     Dosage: UNK
     Route: 065
  4. LYRICA [Suspect]
     Active Substance: PREGABALIN
     Indication: Suicide attempt
  5. LYRICA [Suspect]
     Active Substance: PREGABALIN
     Indication: Anxiety disorder
  6. LYRICA [Suspect]
     Active Substance: PREGABALIN
     Indication: Neuralgia
  7. MORPHINE [Suspect]
     Active Substance: MORPHINE
     Indication: Suicide attempt
     Dosage: UNK
     Route: 065
  8. ALCOHOL [Concomitant]
     Active Substance: ALCOHOL
     Indication: Product used for unknown indication
     Dosage: UNK
     Route: 065
  9. LYRICA [Concomitant]
     Active Substance: PREGABALIN
     Indication: Neuralgia
     Dosage: UNK
     Route: 065
  10. LYRICA [Concomitant]
     Active Substance: PREGABALIN
     Indication: Anxiety disorder

REACTIONS (4)
  - Overdose [Fatal]
  - Death [Fatal]
  - Toxicity to various agents [Fatal]
  - Completed suicide [Fatal]
